FAERS Safety Report 17470526 (Version 5)
Quarter: 2020Q3

REPORT INFORMATION
  Report Type: Spontaneous
  Country: US (occurrence: US)
  Receive Date: 20200228
  Receipt Date: 20200710
  Transmission Date: 20201102
  Serious: Yes (Disabling, Other)
  Sender: FDA-Public Use
  Company Number: NVSC2020US051863

PATIENT
  Age: 85 Year
  Sex: Female

DRUGS (3)
  1. LUCENTIS [Suspect]
     Active Substance: RANIBIZUMAB
     Indication: PRODUCT USED FOR UNKNOWN INDICATION
     Dosage: UNK (5 INJECTIONS)
     Route: 065
  2. EYLEA [Suspect]
     Active Substance: AFLIBERCEPT
     Indication: PRODUCT USED FOR UNKNOWN INDICATION
     Dosage: UNK (11 INJECTIONS)
     Route: 031
     Dates: end: 20200212
  3. BEOVU [Suspect]
     Active Substance: BROLUCIZUMAB-DBLL
     Indication: NEOVASCULAR AGE-RELATED MACULAR DEGENERATION
     Dosage: 6 MG, QMO
     Route: 031
     Dates: start: 20200109

REACTIONS (11)
  - Retinal vascular occlusion [Recovering/Resolving]
  - Uveitis [Not Recovered/Not Resolved]
  - Visual field defect [Unknown]
  - Pupillary disorder [Unknown]
  - Blindness transient [Recovered/Resolved with Sequelae]
  - Visual acuity reduced [Recovered/Resolved with Sequelae]
  - Vitritis [Unknown]
  - Keratitis [Unknown]
  - Eye inflammation [Unknown]
  - Vitreous haemorrhage [Unknown]
  - Anterior chamber cell [Recovered/Resolved]

NARRATIVE: CASE EVENT DATE: 20200206
